FAERS Safety Report 5864811-8 (Version None)
Quarter: 2008Q3

REPORT INFORMATION
  Report Type: 
  Country: None (occurrence: None)
  Receive Date: 20080829
  Receipt Date: 20080730
  Transmission Date: 20090109
  Serious: No
  Sender: FDA-Public Use
  Company Number: US-ABBOTT-08P-163-0464410-00

PATIENT
  Sex: Male

DRUGS (3)
  1. SIMCOR [Suspect]
     Indication: HYPERCHOLESTEROLAEMIA
     Dosage: 500/20 MG QHS
     Route: 048
     Dates: start: 20080717
  2. DUETACT [Suspect]
     Indication: DRUG USE FOR UNKNOWN INDICATION
     Dosage: 30/2 MG QD
     Route: 048
     Dates: start: 20080717
  3. METFORMIN HCL [Concomitant]
     Indication: DRUG USE FOR UNKNOWN INDICATION
     Route: 048

REACTIONS (2)
  - ERECTILE DYSFUNCTION [None]
  - FLUSHING [None]
